FAERS Safety Report 8050736-9 (Version None)
Quarter: 2012Q1

REPORT INFORMATION
  Report Type: 
  Country: None (occurrence: None)
  Receive Date: 20120117
  Receipt Date: 20120117
  Transmission Date: 20120608
  Serious: No
  Sender: FDA-Public Use
  Company Number: None

PATIENT

DRUGS (5)
  1. LIPITOR [Concomitant]
  2. ASPIRIN [Concomitant]
  3. MECLIZINE [Concomitant]
  4. PRADAXA [Suspect]
     Indication: ATRIAL FIBRILLATION
     Dosage: 150
     Route: 048
  5. METOPROLOL TARTRATE [Concomitant]

REACTIONS (1)
  - HAEMATURIA [None]
